FAERS Safety Report 14747361 (Version 1)
Quarter: 2018Q2

REPORT INFORMATION
  Report Type: Spontaneous
  Country: US (occurrence: US)
  Receive Date: 20180411
  Receipt Date: 20180411
  Transmission Date: 20180711
  Serious: No
  Sender: FDA-Public Use
  Company Number: US-MYLANLABS-2018M1017716

PATIENT
  Sex: Male

DRUGS (2)
  1. PROPANOLOL                         /00030001/ [Concomitant]
     Active Substance: PROPRANOLOL HYDROCHLORIDE
     Indication: PRODUCT USED FOR UNKNOWN INDICATION
     Dosage: UNK, BID
     Route: 048
  2. EMSAM [Suspect]
     Active Substance: SELEGILINE
     Indication: DEPRESSION
     Dosage: 12 MG, 3 WEEKS DURATION OF TREATMENT
     Route: 062
     Dates: start: 20180227

REACTIONS (2)
  - Dermatitis contact [Not Recovered/Not Resolved]
  - Application site reaction [Unknown]

NARRATIVE: CASE EVENT DATE: 20180306
